FAERS Safety Report 5664424-7 (Version None)
Quarter: 2008Q1

REPORT INFORMATION
  Report Type: 
  Country: None (occurrence: None)
  Receive Date: 20080312
  Receipt Date: 20080215
  Transmission Date: 20080703
  Serious: Yes (Hospitalization)
  Sender: FDA-Public Use
  Company Number: 2008S1002645

PATIENT
  Age: 12 Year
  Sex: Female

DRUGS (1)
  1. BACLOFEN [Suspect]
     Route: 048

REACTIONS (9)
  - BLOOD CREATINE PHOSPHOKINASE INCREASED [None]
  - BRAIN OEDEMA [None]
  - COLD SWEAT [None]
  - COMA [None]
  - DRUG TOXICITY [None]
  - ENCEPHALITIS [None]
  - OVERDOSE [None]
  - SINUS BRADYCARDIA [None]
  - VISUAL DISTURBANCE [None]
